FAERS Safety Report 18246400 (Version 2)
Quarter: 2020Q4

REPORT INFORMATION
  Report Type: Other
  Country: US (occurrence: US)
  Receive Date: 20200909
  Receipt Date: 20201005
  Transmission Date: 20210113
  Serious: Yes (Life-Threatening)
  Sender: FDA-Public Use
  Company Number: US-ROCHE-2670453

PATIENT
  Age: 51 Year
  Sex: Female
  Weight: 66.74 kg

DRUGS (2)
  1. OCREVUS [Suspect]
     Active Substance: OCRELIZUMAB
     Indication: RELAPSING MULTIPLE SCLEROSIS
     Dosage: PRESCRIBED WITH OCRELIZUMAB 300 MG DAY AND DAY 15 AND LATER, 600 MG, EVERY 6 MONTHS?DATE OF TREATMEN
     Route: 042
     Dates: start: 20200827
  2. OCREVUS [Suspect]
     Active Substance: OCRELIZUMAB
     Indication: MULTIPLE SCLEROSIS

REACTIONS (2)
  - Dysphagia [Recovered/Resolved]
  - Pharyngeal swelling [Recovered/Resolved]

NARRATIVE: CASE EVENT DATE: 20200827
